FAERS Safety Report 9713881 (Version 1)
Quarter: 2013Q4

REPORT INFORMATION
  Report Type: Report from Study
  Country: JP (occurrence: JP)
  Receive Date: 20131126
  Receipt Date: 20131126
  Transmission Date: 20140711
  Serious: Yes (Life-Threatening)
  Sender: FDA-Public Use
  Company Number: JP-GLAXOSMITHKLINE-B0922513A

PATIENT
  Age: 11 Year
  Sex: Female
  Weight: 31.3 kg

DRUGS (37)
  1. ARRANON [Suspect]
     Indication: T-CELL TYPE ACUTE LEUKAEMIA
     Dosage: 650MGM2 PER DAY
     Route: 042
     Dates: start: 20121024, end: 20121028
  2. ARRANON [Suspect]
     Indication: T-CELL TYPE ACUTE LEUKAEMIA
     Dosage: 650MGM2 PER DAY
     Route: 042
     Dates: start: 20121209, end: 20121213
  3. ARRANON [Suspect]
     Indication: T-CELL TYPE ACUTE LEUKAEMIA
     Dosage: 650MGM2 PER DAY
     Route: 042
     Dates: start: 20121230, end: 20130103
  4. CYTARABINE [Suspect]
     Indication: NEOPLASM MALIGNANT
     Dates: start: 20121113, end: 20121117
  5. ZYLORIC [Concomitant]
     Route: 048
     Dates: start: 20121020, end: 20121031
  6. DIAZEPAM [Concomitant]
     Indication: RESTLESSNESS
     Route: 048
     Dates: start: 20121020, end: 20121211
  7. BAKTAR [Concomitant]
     Indication: PROPHYLAXIS
     Route: 048
     Dates: start: 20121026, end: 20121211
  8. PREDONINE [Concomitant]
     Indication: T-CELL TYPE ACUTE LEUKAEMIA
     Route: 048
     Dates: start: 20121031, end: 20121107
  9. GRAN [Concomitant]
     Indication: PROPHYLAXIS
     Route: 042
     Dates: start: 20121112, end: 20121126
  10. FLUMETHOLON [Concomitant]
     Indication: PROPHYLAXIS
     Route: 031
     Dates: start: 20121113, end: 20121126
  11. MOBIC [Concomitant]
     Indication: PAIN
     Route: 048
     Dates: start: 20121113, end: 20121116
  12. MAGLAX [Concomitant]
     Indication: PROPHYLAXIS
     Route: 048
     Dates: start: 20121117, end: 20121211
  13. ITRIZOLE [Concomitant]
     Indication: PROPHYLAXIS
     Route: 048
     Dates: start: 20121126, end: 20121201
  14. VENILON [Concomitant]
     Indication: T-CELL TYPE ACUTE LEUKAEMIA
     Route: 042
     Dates: start: 20121201, end: 20121203
  15. ASPARA K [Concomitant]
     Indication: HYPOKALAEMIA
     Route: 048
     Dates: start: 20121204, end: 20130104
  16. GASTER [Concomitant]
     Indication: PROPHYLAXIS
     Route: 048
     Dates: start: 20121101, end: 20121107
  17. GASTER [Concomitant]
     Indication: PROPHYLAXIS
     Route: 048
     Dates: start: 20121209, end: 20121215
  18. GASTER [Concomitant]
     Indication: PROPHYLAXIS
     Route: 048
     Dates: start: 20121227, end: 20130102
  19. DECADRON [Concomitant]
     Indication: T-CELL TYPE ACUTE LEUKAEMIA
     Route: 048
     Dates: start: 20121230, end: 20130103
  20. PREDONINE [Concomitant]
     Indication: T-CELL TYPE ACUTE LEUKAEMIA
     Dates: start: 20121020, end: 20121031
  21. MORPHINE HYDROCHLORIDE [Concomitant]
     Indication: PAIN
     Dates: start: 20121020, end: 20121029
  22. MORPHINE HYDROCHLORIDE [Concomitant]
     Indication: PAIN
     Dates: start: 20121209, end: 20121215
  23. GASTER [Concomitant]
     Indication: PROPHYLAXIS
     Route: 042
     Dates: start: 20121020, end: 20121031
  24. FLUMARIN [Concomitant]
     Indication: PROPHYLAXIS
     Route: 042
     Dates: start: 20121109, end: 20121111
  25. EXACIN [Concomitant]
     Indication: PROPHYLAXIS
     Dates: start: 20121110, end: 20121111
  26. KYTRIL [Concomitant]
     Indication: PROPHYLAXIS
     Route: 042
     Dates: start: 20121113, end: 20121117
  27. KYTRIL [Concomitant]
     Indication: PROPHYLAXIS
     Route: 042
     Dates: start: 20121024, end: 20121028
  28. KYTRIL [Concomitant]
     Indication: PROPHYLAXIS
     Route: 042
     Dates: start: 20121209, end: 20121213
  29. KYTRIL [Concomitant]
     Indication: PROPHYLAXIS
     Route: 042
     Dates: start: 20121230, end: 20130103
  30. ZOSYN [Concomitant]
     Indication: PROPHYLAXIS
     Dates: start: 20130104, end: 20130109
  31. NEUTROGIN [Concomitant]
     Indication: PROPHYLAXIS
     Dates: start: 20121203, end: 20121208
  32. FUNGUARD [Concomitant]
     Indication: PROPHYLAXIS
     Route: 042
     Dates: start: 20121125, end: 20121130
  33. AMBISOME [Concomitant]
     Indication: PROPHYLAXIS
     Route: 042
     Dates: start: 20121130, end: 20130118
  34. VICCLOX [Concomitant]
     Indication: PROPHYLAXIS
     Route: 042
     Dates: start: 20121206, end: 20121214
  35. VANCOMYCIN [Concomitant]
     Indication: PROPHYLAXIS
     Route: 042
     Dates: start: 20121216, end: 20121221
  36. FLUDARABINE PHOSPHATE [Concomitant]
     Indication: NEOPLASM MALIGNANT
     Dates: start: 20121113, end: 20121117
  37. IDARUBICIN [Concomitant]
     Indication: NEOPLASM MALIGNANT
     Dates: start: 20121113, end: 20121117

REACTIONS (8)
  - Febrile neutropenia [Recovered/Resolved]
  - Platelet count decreased [Recovered/Resolved]
  - White blood cell count decreased [Recovered/Resolved]
  - Anaemia [Recovered/Resolved]
  - Platelet count decreased [Recovered/Resolved]
  - White blood cell count decreased [Recovered/Resolved]
  - Anaemia [Recovered/Resolved]
  - Platelet count decreased [Recovered/Resolved]
